FAERS Safety Report 5969417-8 (Version None)
Quarter: 2008Q4

REPORT INFORMATION
  Report Type: 
  Country: None (occurrence: None)
  Receive Date: 20081126
  Receipt Date: 20080903
  Transmission Date: 20090506
  Serious: No
  Sender: FDA-Public Use
  Company Number: US-ABBOTT-08P-163-0473899-00

PATIENT
  Sex: Male
  Weight: 93.07 kg

DRUGS (6)
  1. SIMCOR [Suspect]
     Indication: HIGH DENSITY LIPOPROTEIN DECREASED
     Dosage: 500/20MG
     Route: 048
     Dates: start: 20080901
  2. SIMCOR [Suspect]
     Indication: BLOOD TRIGLYCERIDES INCREASED
  3. INSULIN [Concomitant]
     Indication: DIABETES MELLITUS
     Route: 058
  4. DOXAZOSIN MESYLATE [Concomitant]
     Indication: HYPERTENSION
     Dosage: 4MG AT BEDTIME
     Route: 048
  5. FOSINOPRIL SODIUM [Concomitant]
     Indication: HYPERTENSION
     Route: 048
  6. DILTIAZEM HYDROCHLORIDE [Concomitant]
     Indication: HYPERTENSION
     Route: 048

REACTIONS (2)
  - BLOOD GLUCOSE DECREASED [None]
  - BLOOD GLUCOSE INCREASED [None]
